FAERS Safety Report 24753156 (Version 1)
Quarter: 2024Q4

REPORT INFORMATION
  Report Type: Report from Study
  Country: JP (occurrence: JP)
  Receive Date: 20241219
  Receipt Date: 20241219
  Transmission Date: 20250114
  Serious: Yes (Life-Threatening, Other)
  Sender: RANBAXY
  Company Number: JP-SUN PHARMACEUTICAL INDUSTRIES LTD-2024R1-481118

PATIENT
  Age: 78 Year
  Sex: Male

DRUGS (4)
  1. DOXORUBICIN [Suspect]
     Active Substance: DOXORUBICIN
     Indication: Chemotherapy
     Dosage: 20 MILLIGRAM/SQ. METER
     Route: 065
  2. DACARBAZINE [Suspect]
     Active Substance: DACARBAZINE
     Indication: Chemotherapy
     Dosage: 300 MILLIGRAM/SQ. METER, QD
     Route: 065
  3. IFOSFAMIDE [Suspect]
     Active Substance: IFOSFAMIDE
     Indication: Chemotherapy
     Dosage: 2500 MILLIGRAM/SQ. METER
     Route: 065
  4. MESNA [Suspect]
     Active Substance: MESNA
     Indication: Chemotherapy
     Dosage: 500 MILLIGRAM/SQ. METER, TID
     Route: 065

REACTIONS (4)
  - Neutropenia [Unknown]
  - Therapy partial responder [Unknown]
  - Anaemia [Unknown]
  - Thrombocytopenia [Unknown]
